FAERS Safety Report 10175115 (Version 1)
Quarter: 2014Q2

REPORT INFORMATION
  Report Type: Spontaneous
  Country: CN (occurrence: CN)
  Receive Date: 20140515
  Receipt Date: 20140515
  Transmission Date: 20141212
  Serious: Yes (Hospitalization)
  Sender: FDA-Public Use
  Company Number: PHHY2014CN058931

PATIENT
  Age: 15 Year
  Sex: Female
  Weight: 41 kg

DRUGS (1)
  1. VOLTAREN [Suspect]
     Indication: ARTHRALGIA
     Dosage: 0.42 MG, UNK
     Route: 048
     Dates: start: 20130307, end: 20130309

REACTIONS (3)
  - Anaphylactic reaction [Recovered/Resolved]
  - Pruritus [Unknown]
  - Rash [Unknown]
